FAERS Safety Report 20623523 (Version 1)
Quarter: 2022Q1

REPORT INFORMATION
  Report Type: Spontaneous
  Country: US (occurrence: US)
  Receive Date: 20220322
  Receipt Date: 20220322
  Transmission Date: 20220423
  Serious: No
  Sender: FDA-Public Use
  Company Number: US-BAYER-2022A039826

PATIENT
  Age: 60 Year
  Sex: Female

DRUGS (3)
  1. KERENDIA [Suspect]
     Active Substance: FINERENONE
  2. COREG [Concomitant]
     Active Substance: CARVEDILOL
  3. JARDIANCE [Concomitant]
     Active Substance: EMPAGLIFLOZIN

REACTIONS (1)
  - Hypotension [None]
